FAERS Safety Report 21427340 (Version 1)
Quarter: 2022Q4

REPORT INFORMATION
  Report Type: Spontaneous
  Country: US (occurrence: US)
  Receive Date: 20221008
  Receipt Date: 20221008
  Transmission Date: 20230113
  Serious: No
  Sender: FDA-Public Use
  Company Number: US-PURDUE-USA-2020-0191256

PATIENT
  Sex: Female

DRUGS (1)
  1. DILAUDID [Suspect]
     Active Substance: HYDROMORPHONE HYDROCHLORIDE
     Indication: Exposure via partner
     Dosage: UNKNOWN DOSE
     Route: 050

REACTIONS (2)
  - Exposure via partner [Unknown]
  - Maternal exposure during pregnancy [Recovered/Resolved]
